FAERS Safety Report 8375569-5 (Version None)
Quarter: 2012Q2

REPORT INFORMATION
  Report Type: 
  Country: None (occurrence: None)
  Receive Date: 20120517
  Receipt Date: 20120517
  Transmission Date: 20120825
  Serious: No
  Sender: FDA-Public Use
  Company Number: None

PATIENT

DRUGS (2)
  1. MOXIFLOXACIN [Suspect]
     Dosage: 400 MG ONCE IV
     Route: 042
     Dates: start: 20110909
  2. ONDANSETRON [Suspect]
     Dosage: 2 MG ONCE IV
     Route: 042
     Dates: start: 20110909

REACTIONS (4)
  - ERYTHEMA [None]
  - DYSPNOEA [None]
  - RASH [None]
  - INJECTION SITE ERYTHEMA [None]
